FAERS Safety Report 18914729 (Version 1)
Quarter: 2021Q1

REPORT INFORMATION
  Report Type: Spontaneous
  Country: CA (occurrence: CA)
  Receive Date: 20210218
  Receipt Date: 20210218
  Transmission Date: 20210420
  Serious: Yes (Other)
  Sender: FDA-Public Use
  Company Number: CA-FERAPHARMA-2021-CA-000215

PATIENT
  Age: 9 Day
  Sex: Male
  Weight: .9 kg

DRUGS (1)
  1. DEXAMETHASONE (NON?SPECIFIC) [Suspect]
     Active Substance: DEXAMETHASONE
     Indication: BRONCHOPULMONARY DYSPLASIA
     Dosage: 0.15 MG/KG/DAY

REACTIONS (1)
  - Diabetes insipidus [Recovered/Resolved]
